FAERS Safety Report 6600635-1 (Version None)
Quarter: 2010Q1

REPORT INFORMATION
  Report Type: 
  Country: None (occurrence: None)
  Receive Date: 20100223
  Receipt Date: 20100223
  Transmission Date: 20100710
  Serious: Yes (Hospitalization)
  Sender: FDA-Public Use
  Company Number: None

PATIENT
  Age: 66 Year
  Sex: Female
  Weight: 62 kg

DRUGS (15)
  1. CLOZARIL [Suspect]
     Indication: PSYCHOTIC DISORDER
     Dosage: 250 MG QHS PO
     Route: 048
     Dates: start: 20070101, end: 20100214
  2. IMIPRAMINE [Concomitant]
  3. CLARITIN [Concomitant]
  4. LORAZEPAM [Concomitant]
  5. DITROPAN [Concomitant]
  6. PROTONIX [Concomitant]
  7. SENOKOT [Concomitant]
  8. NOLVADEX [Concomitant]
  9. VITAMIN D [Concomitant]
  10. VITAMIN E [Concomitant]
  11. TYLENOL-500 [Concomitant]
  12. BENADRYL [Concomitant]
  13. NUBAIN [Concomitant]
  14. ZOFRAN [Concomitant]
  15. AMBIEN [Concomitant]

REACTIONS (2)
  - CONSTIPATION [None]
  - NO THERAPEUTIC RESPONSE [None]
